FAERS Safety Report 5971681-6 (Version None)
Quarter: 2008Q4

REPORT INFORMATION
  Report Type: 
  Country: None (occurrence: None)
  Receive Date: 20081201
  Receipt Date: 20081117
  Transmission Date: 20090506
  Serious: Yes (Hospitalization)
  Sender: FDA-Public Use
  Company Number: FR-SANOFI-SYNTHELABO-A02200803451

PATIENT
  Sex: Female

DRUGS (3)
  1. FLUOROURACIL [Suspect]
     Indication: BILE DUCT CANCER
     Route: 041
     Dates: start: 20080710, end: 20080710
  2. FLUOROURACIL [Suspect]
     Route: 041
     Dates: start: 20080710, end: 20080710
  3. ELOXATIN [Suspect]
     Indication: BILE DUCT CANCER
     Route: 041
     Dates: start: 20080710, end: 20080710

REACTIONS (4)
  - HYPOCAPNIA [None]
  - HYPOTHERMIA [None]
  - HYPOXIA [None]
  - MALAISE [None]
